FAERS Safety Report 25498374 (Version 1)
Quarter: 2025Q3

REPORT INFORMATION
  Report Type: Spontaneous
  Country: US (occurrence: US)
  Receive Date: 20250701
  Receipt Date: 20250701
  Transmission Date: 20251021
  Serious: No
  Sender: ALMUS
  Company Number: US-ALMIRALL-US-2025-2326

PATIENT
  Sex: Female

DRUGS (2)
  1. KLISYRI [Suspect]
     Active Substance: TIRBANIBULIN
     Indication: Prophylaxis against solar radiation
     Route: 061
  2. KLISYRI [Suspect]
     Active Substance: TIRBANIBULIN
     Indication: Precancerous condition

REACTIONS (2)
  - Drug ineffective [Unknown]
  - Product packaging quantity issue [Unknown]

NARRATIVE: CASE EVENT DATE: 20250101
